FAERS Safety Report 4331441-9 (Version None)
Quarter: 2004Q1

REPORT INFORMATION
  Report Type: 
  Country: None (occurrence: None)
  Receive Date: 20040331
  Receipt Date: 20040322
  Transmission Date: 20041129
  Serious: Yes (Death)
  Sender: FDA-Public Use
  Company Number: 200410780GDS

PATIENT
  Age: 87 Year
  Sex: Female

DRUGS (7)
  1. ASPIRIN [Suspect]
     Indication: PROPHYLAXIS
     Dosage: 100 MG, QD, ORAL
     Route: 048
     Dates: end: 20040301
  2. PLAVIX [Suspect]
     Indication: PROPHYLAXIS
     Dosage: 75 MG, QD, ORAL
     Route: 048
     Dates: end: 20040301
  3. DAFLON [Concomitant]
  4. THYROID TAB [Concomitant]
  5. SORTIS [Concomitant]
  6. NEXIUM [Concomitant]
  7. DILATREND [Concomitant]

REACTIONS (11)
  - ANAEMIA [None]
  - COMA [None]
  - DECEREBRATION [None]
  - DRUG INTERACTION [None]
  - EPISTAXIS [None]
  - FALL [None]
  - HAEMORRHAGE INTRACRANIAL [None]
  - HEADACHE [None]
  - HYPERTENSION [None]
  - SUBARACHNOID HAEMORRHAGE [None]
  - SYNCOPE [None]
